FAERS Safety Report 21723219 (Version 1)
Quarter: 2022Q4

REPORT INFORMATION
  Report Type: Spontaneous
  Country: US (occurrence: None)
  Receive Date: 20221212
  Receipt Date: 20221212
  Transmission Date: 20230113
  Serious: Yes (Other)
  Sender: FDA-Public Use
  Company Number: None

PATIENT
  Age: 28 Year
  Sex: Female
  Weight: 78.3 kg

DRUGS (2)
  1. TERBUTALINE [Suspect]
     Active Substance: TERBUTALINE
     Indication: Premature labour
     Dosage: FREQUENCY : ONCE;?
     Route: 058
     Dates: start: 20221205, end: 20221205
  2. labetolol 100mg BID [Concomitant]

REACTIONS (1)
  - Tachycardia [None]

NARRATIVE: CASE EVENT DATE: 20221205
